FAERS Safety Report 4407109-7 (Version None)
Quarter: 2004Q3

REPORT INFORMATION
  Report Type: 
  Country: None (occurrence: None)
  Receive Date: 20040721
  Receipt Date: 20040719
  Transmission Date: 20050211
  Serious: Yes (Disabling)
  Sender: FDA-Public Use
  Company Number: HQ5425320NOV2002

PATIENT
  Age: 54 Year
  Sex: Male

DRUGS (5)
  1. DIMETAPP [Suspect]
     Dosage: ORAL
     Route: 046
     Dates: start: 19720101, end: 19950101
  2. ALKA-SELZER PLUS (ACETYLSALICYLIC ACID /CHLORPHENAMINE MALEATE/PHENYLP [Suspect]
     Indication: NASOPHARYNGITIS
     Dosage: 1 TABLET DOSE, 3 TABELTS IN 24 HOURS, ORAL
     Route: 048
     Dates: start: 19720101, end: 19950101
  3. ROBUTISSIN CF (GUAIFENESIN/DEXTROMETHORPHAN/PHENYLPROPANOLAMINE, SYRUP [Suspect]
     Indication: COUGH
     Dosage: 2 TEASPOON , 4 TEASPONS IN 24 HOURS, ORAL
     Route: 048
     Dates: start: 19680101, end: 19950101
  4. TAVIST-D (CLEMASTINE FUMARATE/PHENYLPROPANOLAMINE HYDROCHLORIDE,) [Suspect]
     Indication: SINUS DISORDER
     Dosage: 2 TABLET DOSE, 4 TABLETS IN 24 HOURS, ORAL
     Route: 048
     Dates: start: 19930101, end: 19950101
  5. TYLENOL COLD (CHLORPHENAMINE MALEATE/DEXTROMETHORPHAN HYDROBROMIDE/PAR [Suspect]
     Indication: NASOPHARYNGITIS
     Dosage: 1 TEASPOON DOSE, 3 TEASPONS IN 24 HOURS, ORAL
     Route: 048
     Dates: start: 19680101, end: 19950101

REACTIONS (1)
  - CEREBROVASCULAR ACCIDENT [None]
